FAERS Safety Report 6588004-4 (Version None)
Quarter: 2010Q1

REPORT INFORMATION
  Report Type: 
  Country: None (occurrence: None)
  Receive Date: 20100204
  Receipt Date: 20100118
  Transmission Date: 20100710
  Serious: Yes (Death)
  Sender: FDA-Public Use
  Company Number: IMP_04729_2010

PATIENT
  Age: 63 Year
  Sex: Male

DRUGS (12)
  1. PROMETHAZINE [Suspect]
     Indication: DRUG USE FOR UNKNOWN INDICATION
     Dosage: DF ORAL
     Route: 048
  2. AMITRIPTYLINE HCL [Suspect]
     Indication: DRUG USE FOR UNKNOWN INDICATION
     Dosage: DF ORAL
     Route: 048
  3. OXYCODONE HCL [Suspect]
     Indication: DRUG USE FOR UNKNOWN INDICATION
     Dosage: DF ORAL
     Route: 048
  4. MIRTAZAPINE [Suspect]
     Indication: DRUG USE FOR UNKNOWN INDICATION
     Dosage: DF ORAL
     Route: 048
  5. CLONAZEPAM [Suspect]
     Indication: DRUG USE FOR UNKNOWN INDICATION
     Dosage: DF ORAL
     Route: 048
  6. ATENOLOL [Suspect]
     Indication: DRUG USE FOR UNKNOWN INDICATION
     Dosage: DF ORAL
     Route: 048
  7. PRAZOSIN [Suspect]
     Indication: DRUG USE FOR UNKNOWN INDICATION
     Dosage: DF ORAL
     Route: 048
  8. TRAZODONE HCL [Suspect]
     Indication: DRUG USE FOR UNKNOWN INDICATION
     Dosage: DF ORAL
     Route: 048
  9. NIACIN [Suspect]
     Indication: DRUG USE FOR UNKNOWN INDICATION
     Dosage: DF ORAL
     Route: 048
  10. PRAVACHOL [Suspect]
     Indication: DRUG USE FOR UNKNOWN INDICATION
     Dosage: DF ORAL
     Route: 048
  11. GABAPENTIN [Suspect]
     Indication: DRUG USE FOR UNKNOWN INDICATION
     Dosage: DF ORAL
     Route: 048
  12. VENLAFAXINE [Suspect]
     Indication: DRUG USE FOR UNKNOWN INDICATION
     Dosage: DF ORAL
     Route: 048

REACTIONS (4)
  - CARDIAC ARREST [None]
  - COMPLETED SUICIDE [None]
  - POISONING [None]
  - RESPIRATORY ARREST [None]
